FAERS Safety Report 5147935-2 (Version None)
Quarter: 2006Q4

REPORT INFORMATION
  Report Type: 
  Country: None (occurrence: None)
  Receive Date: 20061110
  Receipt Date: 20061031
  Transmission Date: 20070319
  Serious: Yes (Disabling, Other)
  Sender: FDA-Public Use
  Company Number: IE-ABBOTT-06P-229-0348822-00

PATIENT
  Age: 48 Year
  Sex: Male

DRUGS (6)
  1. VALPROATE SODIUM [Suspect]
     Indication: EPILEPSY
     Route: 048
     Dates: start: 20040101
  2. PHENOBARBITAL TAB [Suspect]
     Indication: EPILEPSY
     Route: 048
  3. ACETAMINOPHEN W/ CODEINE [Concomitant]
     Indication: ANALGESIC EFFECT
     Route: 048
     Dates: start: 20000101
  4. ACETAMINOPHEN W/ PROPOXYPHENE HCL [Concomitant]
     Indication: ANALGESIC EFFECT
     Route: 048
     Dates: start: 20000101
  5. DICLOFENAC SODIUM [Concomitant]
     Indication: ARTHRITIS
     Route: 048
     Dates: start: 20020501
  6. OMEPRAZOLE [Concomitant]
     Indication: ABDOMINAL DISCOMFORT
     Route: 048
     Dates: start: 20030501

REACTIONS (5)
  - ARTHRITIS [None]
  - GENERAL PHYSICAL HEALTH DETERIORATION [None]
  - IMPAIRED WORK ABILITY [None]
  - INFECTION [None]
  - MOBILITY DECREASED [None]
